FAERS Safety Report 19504285 (Version 1)
Quarter: 2021Q3

REPORT INFORMATION
  Report Type: Spontaneous
  Country: CO (occurrence: CO)
  Receive Date: 20210707
  Receipt Date: 20210707
  Transmission Date: 20211014
  Serious: Yes (Other)
  Sender: FDA-Public Use
  Company Number: CO-PFIZER INC-2021630531

PATIENT
  Age: 56 Year
  Sex: Female

DRUGS (2)
  1. REAMPLA [Suspect]
     Active Substance: PALBOCICLIB
     Indication: BREAST CANCER
     Dosage: 125 MG, CYCLIC (1 CAPSULE FOR 21 DAYS AND RESTS FOR A WEEK)
     Route: 048
  2. LETROZOLE. [Concomitant]
     Active Substance: LETROZOLE
     Dosage: 2.5 MG

REACTIONS (6)
  - Uterine haemorrhage [Unknown]
  - Neoplasm progression [Unknown]
  - Endometritis [Unknown]
  - Arthralgia [Unknown]
  - Endometrial thickening [Unknown]
  - Cyst [Unknown]
